FAERS Safety Report 21972704 (Version 5)
Quarter: 2023Q2

REPORT INFORMATION
  Report Type: Spontaneous
  Country: US (occurrence: US)
  Receive Date: 20230209
  Receipt Date: 20230609
  Transmission Date: 20230721
  Serious: No
  Sender: FDA-Public Use
  Company Number: US-PFIZER INC-2021185425

PATIENT
  Age: 69 Year
  Sex: Male

DRUGS (1)
  1. VYNDAMAX [Suspect]
     Active Substance: TAFAMIDIS
     Indication: Familial amyloidosis
     Dosage: 61 MG, 1X/DAY

REACTIONS (5)
  - Dyspnoea exertional [Unknown]
  - Gait disturbance [Unknown]
  - Muscular weakness [Unknown]
  - Malaise [Unknown]
  - Off label use [Unknown]
